FAERS Safety Report 25866341 (Version 1)
Quarter: 2025Q3

REPORT INFORMATION
  Report Type: Report from Study
  Country: US (occurrence: US)
  Receive Date: 20250930
  Receipt Date: 20250930
  Transmission Date: 20251020
  Serious: Yes (Hospitalization)
  Sender: ABBVIE
  Company Number: US-ABBVIE-6479254

PATIENT
  Age: 41 Year
  Sex: Female

DRUGS (4)
  1. SKYRIZI [Suspect]
     Active Substance: RISANKIZUMAB-RZAA
     Indication: Crohn^s disease
     Dosage: FORM STRENGTH 180MG/1.2M
     Route: 058
     Dates: start: 202508
  2. SKYRIZI [Suspect]
     Active Substance: RISANKIZUMAB-RZAA
     Indication: Crohn^s disease
     Route: 042
     Dates: start: 202505, end: 202505
  3. SKYRIZI [Suspect]
     Active Substance: RISANKIZUMAB-RZAA
     Indication: Crohn^s disease
     Route: 042
     Dates: start: 202506, end: 202506
  4. SKYRIZI [Suspect]
     Active Substance: RISANKIZUMAB-RZAA
     Indication: Crohn^s disease
     Route: 042
     Dates: start: 202507, end: 202507

REACTIONS (10)
  - Haemorrhage [Not Recovered/Not Resolved]
  - Feeding disorder [Unknown]
  - Fluid intake reduced [Unknown]
  - Vomiting [Unknown]
  - Nausea [Unknown]
  - Hypokalaemia [Unknown]
  - Syncope [Unknown]
  - Asthenia [Unknown]
  - Malaise [Unknown]
  - Abdominal distension [Unknown]

NARRATIVE: CASE EVENT DATE: 20250101
